FAERS Safety Report 17687354 (Version 3)
Quarter: 2023Q2

REPORT INFORMATION
  Report Type: Spontaneous
  Country: US (occurrence: None)
  Receive Date: 20200421
  Receipt Date: 20230407
  Transmission Date: 20230722
  Serious: Yes (Other)
  Sender: FDA-Public Use
  Company Number: 2020SE51971

PATIENT
  Age: 19899 Day
  Sex: Female
  Weight: 86.2 kg

DRUGS (47)
  1. NEXIUM [Suspect]
     Active Substance: ESOMEPRAZOLE MAGNESIUM
     Indication: Gastrooesophageal reflux disease
     Route: 048
     Dates: start: 200401, end: 201201
  2. NEXIUM [Suspect]
     Active Substance: ESOMEPRAZOLE MAGNESIUM
     Indication: Gastrooesophageal reflux disease
     Route: 048
     Dates: start: 2004, end: 2012
  3. NEXIUM 24HR [Suspect]
     Active Substance: ESOMEPRAZOLE MAGNESIUM
     Indication: Gastrooesophageal reflux disease
     Route: 048
     Dates: start: 200401, end: 201201
  4. NEXIUM 24HR [Suspect]
     Active Substance: ESOMEPRAZOLE MAGNESIUM
     Indication: Gastrooesophageal reflux disease
     Route: 048
     Dates: start: 2004, end: 2012
  5. OMEPRAZOLE [Suspect]
     Active Substance: OMEPRAZOLE
     Indication: Gastrooesophageal reflux disease
     Dosage: GENERIC
     Dates: start: 20150326, end: 20150910
  6. PREVACID [Suspect]
     Active Substance: LANSOPRAZOLE
     Indication: Gastrooesophageal reflux disease
     Dosage: 30.0MG UNKNOWN
     Dates: start: 20030916, end: 20040326
  7. PROTONIX [Suspect]
     Active Substance: PANTOPRAZOLE SODIUM
     Indication: Gastrooesophageal reflux disease
     Dosage: 40.0MG UNKNOWN
     Dates: start: 20020925
  8. PROTONIX [Suspect]
     Active Substance: PANTOPRAZOLE SODIUM
     Indication: Gastrooesophageal reflux disease
     Dosage: GENERIC UNKNOWN
     Dates: start: 20160116
  9. VITAMIN D [Concomitant]
     Active Substance: VITAMIN D NOS
     Indication: Anaemia
     Dates: start: 2018
  10. TYLENOL [Concomitant]
     Active Substance: ACETAMINOPHEN
     Indication: Pain
     Dosage: AS NEEDED
  11. ADVIL [Concomitant]
     Active Substance: IBUPROFEN
     Indication: Pain
     Dosage: AS NEEDED
  12. ALKA-SELTZER [Concomitant]
     Active Substance: ANHYDROUS CITRIC ACID\ASPIRIN\SODIUM BICARBONATE
     Dosage: 2 TAB
     Dates: start: 2015, end: 2019
  13. FUROSEMIDE [Concomitant]
     Active Substance: FUROSEMIDE
     Dosage: 2 TAB
     Dates: start: 2015, end: 2019
  14. METFORMIN [Concomitant]
     Active Substance: METFORMIN HYDROCHLORIDE
     Dosage: 2 TAB
     Dates: start: 2015, end: 2019
  15. CHOLESTYRAMINE [Concomitant]
     Active Substance: CHOLESTYRAMINE
     Dosage: 2 TAB
     Dates: start: 2015, end: 2019
  16. SYNTHROID [Concomitant]
     Active Substance: LEVOTHYROXINE SODIUM
     Dosage: 2 TAB
     Dates: start: 2015, end: 2019
  17. AMLODIPINE [Concomitant]
     Active Substance: AMLODIPINE BESYLATE
     Dosage: 2 TAB
     Dates: start: 2015, end: 2019
  18. RANITIDINE [Concomitant]
     Active Substance: RANITIDINE
     Dosage: 2 TAB
     Dates: start: 2015, end: 2019
  19. FLUTICASONE [Concomitant]
     Active Substance: FLUTICASONE
     Dosage: 2 TAB
     Dates: start: 2015, end: 2019
  20. METHYLPREDNISOLONE [Concomitant]
     Active Substance: METHYLPREDNISOLONE
     Dosage: 2 TAB
     Dates: start: 2015, end: 2019
  21. AMLODIPINE BESYLATE [Concomitant]
     Active Substance: AMLODIPINE BESYLATE
     Dosage: 2 TAB
     Dates: start: 2015, end: 2019
  22. HYDROCHLOROTHIAZIDE [Concomitant]
     Active Substance: HYDROCHLOROTHIAZIDE
     Dosage: 2 TAB
     Dates: start: 2015, end: 2019
  23. VESICARE [Concomitant]
     Active Substance: SOLIFENACIN SUCCINATE
     Dosage: 2 TAB
     Dates: start: 2015, end: 2019
  24. SPIRONOLACTONE [Concomitant]
     Active Substance: SPIRONOLACTONE
     Dosage: 2 TAB
     Dates: start: 2015, end: 2019
  25. LEVOFLOXACIN [Concomitant]
     Active Substance: LEVOFLOXACIN
     Dosage: 2 TAB
     Dates: start: 2015, end: 2019
  26. PROAIR HFA [Concomitant]
     Active Substance: ALBUTEROL SULFATE
     Dosage: 2 TAB
     Dates: start: 2015, end: 2019
  27. MELOXICAM [Concomitant]
     Active Substance: MELOXICAM
     Dosage: 2 TAB
     Dates: start: 2015, end: 2019
  28. ACETYLSALICYLIC ACID/HYDROCODONE [Concomitant]
     Dosage: 2 TAB
     Dates: start: 2015, end: 2019
  29. DOXYCYCLINE [Concomitant]
     Active Substance: DOXYCYCLINE
     Dosage: 2 TAB
     Dates: start: 2015, end: 2019
  30. TRAMADOL [Concomitant]
     Active Substance: TRAMADOL
     Dosage: 2 TAB
     Dates: start: 2015, end: 2019
  31. TORSEMIDE [Concomitant]
     Active Substance: TORSEMIDE
     Dosage: 2 TAB
     Dates: start: 2015, end: 2019
  32. ESZOPICLONE [Concomitant]
     Active Substance: ESZOPICLONE
     Dosage: 2 TAB
     Dates: start: 2015, end: 2019
  33. OXYCODONE [Concomitant]
     Active Substance: OXYCODONE
     Dosage: 2 TAB
     Dates: start: 2015, end: 2019
  34. NYSTATIN [Concomitant]
     Active Substance: NYSTATIN
     Dosage: 2 TAB
     Dates: start: 2015, end: 2019
  35. AZITHROMYCIN [Concomitant]
     Active Substance: AZITHROMYCIN
     Dosage: 2 TAB
     Dates: start: 2015, end: 2019
  36. NABUMETONE [Concomitant]
     Active Substance: NABUMETONE
     Dosage: 2 TAB
     Dates: start: 2015, end: 2019
  37. AMITRIPTYLINE [Concomitant]
     Active Substance: AMITRIPTYLINE
     Dosage: 2 TAB
     Dates: start: 2015, end: 2019
  38. ALLOPURINOL [Concomitant]
     Active Substance: ALLOPURINOL
     Dosage: 2 TAB
     Dates: start: 2015, end: 2019
  39. DICLOFENAC [Concomitant]
     Active Substance: DICLOFENAC
     Dosage: 2 TAB
     Dates: start: 2015, end: 2019
  40. ANORO ELLIPTA [Concomitant]
     Active Substance: UMECLIDINIUM BROMIDE\VILANTEROL TRIFENATATE
     Dosage: 2 TAB
     Dates: start: 2015, end: 2019
  41. DEPAKOTE [Concomitant]
     Active Substance: DIVALPROEX SODIUM
     Dosage: 2 TAB
     Dates: start: 2015, end: 2019
  42. ZYPREXA [Concomitant]
     Active Substance: OLANZAPINE
     Dosage: 2 TAB
     Dates: start: 2015, end: 2019
  43. FLEXERIL [Concomitant]
     Active Substance: CYCLOBENZAPRINE HYDROCHLORIDE
     Dosage: 2 TAB
     Dates: start: 2015, end: 2019
  44. INDOCIN [Concomitant]
     Active Substance: INDOMETHACIN
     Dosage: 2 TAB
     Dates: start: 2015, end: 2019
  45. CEPHALEXIN [Concomitant]
     Active Substance: CEPHALEXIN
     Dosage: 2 TAB
     Dates: start: 2015, end: 2019
  46. AVAPRO [Concomitant]
     Active Substance: IRBESARTAN
     Dosage: 2 TAB
     Dates: start: 2015, end: 2019
  47. XENICAL [Concomitant]
     Active Substance: ORLISTAT
     Dosage: 2 TAB
     Dates: start: 2015, end: 2019

REACTIONS (3)
  - Chronic kidney disease [Not Recovered/Not Resolved]
  - Renal injury [Unknown]
  - Renal failure [Unknown]

NARRATIVE: CASE EVENT DATE: 20160613
